FAERS Safety Report 8967785 (Version 1)
Quarter: 2012Q4

REPORT INFORMATION
  Report Type: 
  Country: US (occurrence: US)
  Receive Date: 20121218
  Receipt Date: 20121218
  Transmission Date: 20130627
  Serious: Yes (Hospitalization)
  Sender: FDA-Public Use
  Company Number: US-B.I. PHARMACEUTICALS,INC./RIDGEFIELD-2012-BI-03027BP

PATIENT
  Age: 84 Year
  Sex: Male

DRUGS (7)
  1. PRADAXA [Suspect]
     Indication: CEREBROVASCULAR ACCIDENT PROPHYLAXIS
     Dosage: 300 mg
     Route: 048
     Dates: start: 20121011
  2. PRADAXA [Suspect]
     Indication: ATRIAL FIBRILLATION
  3. AMLODIPINE [Concomitant]
  4. LISINOPRIL [Concomitant]
  5. METOPROLOL [Concomitant]
  6. DOXAZOSIN [Concomitant]
  7. LEVOTHYROID [Concomitant]

REACTIONS (1)
  - Haemorrhagic stroke [Unknown]
